FAERS Safety Report 4861139-X (Version None)
Quarter: 2005Q4

REPORT INFORMATION
  Report Type: 
  Country: None (occurrence: None)
  Receive Date: 20051216
  Receipt Date: 20051205
  Transmission Date: 20060501
  Serious: Yes (Other)
  Sender: FDA-Public Use
  Company Number: 219554

PATIENT
  Age: 59 Year
  Sex: Male
  Weight: 80.3 kg

DRUGS (2)
  1. AVASTIN [Suspect]
     Indication: COLORECTAL CANCER METASTATIC
     Dosage: 600 MG
     Dates: start: 20040306
  2. XELODA [Concomitant]

REACTIONS (3)
  - COMMINUTED FRACTURE [None]
  - FALL [None]
  - HUMERUS FRACTURE [None]
